FAERS Safety Report 14676660 (Version 3)
Quarter: 2018Q2

REPORT INFORMATION
  Report Type: Spontaneous
  Country: JP (occurrence: JP)
  Receive Date: 20180324
  Receipt Date: 20180514
  Transmission Date: 20180711
  Serious: Yes (Hospitalization)
  Sender: FDA-Public Use
  Company Number: JP-ROCHE-2096102

PATIENT
  Age: 71 Year
  Sex: Male
  Weight: 64 kg

DRUGS (10)
  1. OXALIPLATIN. [Concomitant]
     Active Substance: OXALIPLATIN
     Indication: COLON CANCER
     Route: 041
     Dates: start: 20180112, end: 20180309
  2. OLMESARTAN [Concomitant]
     Active Substance: OLMESARTAN
     Dosage: DOSAGE IS UNCERTAIN.
     Route: 048
  3. CARVEDILOL. [Concomitant]
     Active Substance: CARVEDILOL
     Dosage: DOSAGE IS UNCERTAIN.
     Route: 048
  4. AVASTIN [Suspect]
     Active Substance: BEVACIZUMAB
     Indication: COLON CANCER
     Route: 041
     Dates: start: 20180112, end: 20180309
  5. LEVEMIR [Concomitant]
     Active Substance: INSULIN DETEMIR
     Dosage: DOSAGE IS UNCERTAIN.
     Route: 065
  6. TS-1 [Suspect]
     Active Substance: GIMERACIL\OTERACIL\TEGAFUR
     Indication: COLON CANCER
     Dosage: 2 DAYS ADMINISTRATION FOLLOWED BY 2 DAYS REST
     Route: 048
     Dates: start: 20180112
  7. NEXIUM [Concomitant]
     Active Substance: ESOMEPRAZOLE MAGNESIUM
     Dosage: DOSAGE IS UNCERTAIN.
     Route: 048
  8. NOVORAPID [Concomitant]
     Active Substance: INSULIN ASPART
     Dosage: DOSAGE IS UNCERTAIN.
     Route: 065
  9. TSUMURA JUZENTAIHOTO [Concomitant]
     Dosage: DOSAGE IS UNCERTAIN.
     Route: 048
  10. NIFEDIPINE CR [Concomitant]
     Active Substance: NIFEDIPINE
     Dosage: DOSAGE IS UNCERTAIN.
     Route: 048

REACTIONS (4)
  - Gastroenteritis [Recovering/Resolving]
  - Dehydration [Recovered/Resolved]
  - Malaise [Unknown]
  - Acute kidney injury [Recovered/Resolved]

NARRATIVE: CASE EVENT DATE: 20180310
